FAERS Safety Report 19692833 (Version 2)
Quarter: 2022Q2

REPORT INFORMATION
  Report Type: Report from Study
  Country: NO (occurrence: NO)
  Receive Date: 20210812
  Receipt Date: 20220505
  Transmission Date: 20220721
  Serious: Yes (Hospitalization)
  Sender: FDA-Public Use
  Company Number: NO-JNJFOC-20210806117

PATIENT
  Age: 73 Year
  Sex: Male

DRUGS (26)
  1. IBRUTINIB [Suspect]
     Active Substance: IBRUTINIB
     Indication: Mantle cell lymphoma
     Dosage: LAST DOSE PRIOR TO EVENT: 20 JUL 2021
     Route: 048
     Dates: start: 20210608
  2. RITUXIMAB [Concomitant]
     Active Substance: RITUXIMAB
     Indication: Mantle cell lymphoma
     Route: 065
     Dates: start: 20210607
  3. ATACAND [Concomitant]
     Active Substance: CANDESARTAN CILEXETIL
     Indication: Product used for unknown indication
     Route: 048
  4. SULFAMETHOXAZOLE\TRIMETHOPRIM [Concomitant]
     Active Substance: SULFAMETHOXAZOLE\TRIMETHOPRIM
     Indication: Product used for unknown indication
     Dosage: 80 MG/ 400 MG 2 TABLETS X 2 SATURDAYS AND SUNDAYS
     Route: 048
  5. FLUTIKASON [Concomitant]
     Indication: Product used for unknown indication
     Dosage: 1 X 2
  6. FLUTICASONE PROPIONATE\SALMETEROL XINAFOATE [Concomitant]
     Active Substance: FLUTICASONE PROPIONATE\SALMETEROL XINAFOATE
     Indication: Product used for unknown indication
     Dosage: 50 UG/ 100 UG, 1 X 2
  7. CEFATRIZINE [Concomitant]
     Active Substance: CEFATRIZINE
     Indication: Product used for unknown indication
     Dosage: 10 MG ON DEMAND
     Route: 048
  8. ACETAMINOPHEN [Concomitant]
     Active Substance: ACETAMINOPHEN
     Indication: Product used for unknown indication
     Dosage: 1 G ON DEMAND
     Route: 048
  9. DESLORATADINE [Concomitant]
     Active Substance: DESLORATADINE
     Indication: Product used for unknown indication
     Dosage: 5 MG ON DEMAND
     Route: 048
  10. TAMSULOSIN [Concomitant]
     Active Substance: TAMSULOSIN
     Indication: Product used for unknown indication
     Dosage: 1
     Dates: end: 20210608
  11. AZELASTINE HYDROCHLORIDE\FLUTICASONE PROPIONATE [Concomitant]
     Active Substance: AZELASTINE HYDROCHLORIDE\FLUTICASONE PROPIONATE
     Indication: Product used for unknown indication
     Dosage: 137/ 50 UG X 2
  12. PANTOPRAZOLE SODIUM [Concomitant]
     Active Substance: PANTOPRAZOLE SODIUM
     Indication: Prophylaxis against gastrointestinal ulcer
     Dosage: ULCUS PROPHYLAXIS (CYCLE 1)
  13. FINASTERIDE [Concomitant]
     Active Substance: FINASTERIDE
     Indication: Benign prostatic hyperplasia
     Dosage: CYCLE 1
  14. ALLOPURINOL [Concomitant]
     Active Substance: ALLOPURINOL
     Indication: Product used for unknown indication
     Dosage: CYCLE 1
  15. DEKSKLORFENIRAMIN [Concomitant]
     Indication: Product used for unknown indication
     Dosage: CYCLE 1, X 1 BEFORE TREATMENT
  16. DEKSKLORFENIRAMIN [Concomitant]
     Dosage: CYCLE 1, X 1 DURING TREATMENT
  17. DEKSKLORFENIRAMIN [Concomitant]
     Dosage: CYCLE 2, X 1 BEFORE TREATMENT
  18. DEKSKLORFENIRAMIN [Concomitant]
     Dosage: CYCLE 3, X 1 BEFORE TREATMENT
  19. DEKSKLORFENIRAMIN [Concomitant]
     Dosage: CYCLE 4, X 1 BEFORE TREATMENT
  20. DEXAMETHASONE [Concomitant]
     Active Substance: DEXAMETHASONE
     Indication: Product used for unknown indication
     Dosage: CYCLE 3, X 1 BEFORE TREATMENT
  21. DEXAMETHASONE [Concomitant]
     Active Substance: DEXAMETHASONE
     Dosage: CYCLE 3, X 1 BEFORE TREATMENT
  22. DEXAMETHASONE [Concomitant]
     Active Substance: DEXAMETHASONE
     Dosage: CYCLE 1, X 1 DURING TREATMENT
  23. DEXAMETHASONE [Concomitant]
     Active Substance: DEXAMETHASONE
     Dosage: CYCLE 1, X 1 BEFORE TREATMENT
  24. DEXAMETHASONE [Concomitant]
     Active Substance: DEXAMETHASONE
     Dosage: CYCLE 2, X 1 BEFORE TREATMENT
  25. DEXAMETHASONE [Concomitant]
     Active Substance: DEXAMETHASONE
     Dosage: CYCLE 4, X 1 BEFORE TREATMENT
  26. DEXAMETHASONE [Concomitant]
     Active Substance: DEXAMETHASONE
     Dosage: CYCLE 1, X 1 DURING TREATMENT

REACTIONS (1)
  - Febrile neutropenia [Recovered/Resolved]

NARRATIVE: CASE EVENT DATE: 20210730
